FAERS Safety Report 12979762 (Version 5)
Quarter: 2017Q3

REPORT INFORMATION
  Report Type: Spontaneous
  Country: FR (occurrence: FR)
  Receive Date: 20161128
  Receipt Date: 20170828
  Transmission Date: 20171127
  Serious: Yes (Death, Hospitalization, Other)
  Sender: FDA-Public Use
  Company Number: FR-BAXTER-2016BAX059142

PATIENT
  Age: 62 Year
  Sex: Male
  Weight: 74 kg

DRUGS (76)
  1. DOXORUBICIN [Suspect]
     Active Substance: DOXORUBICIN
     Indication: METASTASES TO DIAPHRAGM
     Route: 065
     Dates: start: 20161003
  2. PREDNISONE. [Suspect]
     Active Substance: PREDNISONE
     Indication: HIGH GRADE B-CELL LYMPHOMA BURKITT-LIKE LYMPHOMA
  3. ETOPOSIDE MYLAN [Suspect]
     Active Substance: ETOPOSIDE
     Indication: BONE MARROW CONDITIONING REGIMEN
     Dosage: EQUIVALENT TO 193 MG EVERY 12 HOURS OR 386 MG DAILY, 772 MG TOTAL, FROM DAY-6 TO DAY-3, BEAC PROTOCO
     Route: 042
     Dates: start: 20161105, end: 20161108
  4. ARACYTINE [Suspect]
     Active Substance: CYTARABINE
     Indication: NON-HODGKIN^S LYMPHOMA METASTATIC
  5. ZOPHREN [Suspect]
     Active Substance: ONDANSETRON
     Route: 065
     Dates: start: 20161105, end: 20161105
  6. SOLU-MEDROL [Suspect]
     Active Substance: METHYLPREDNISOLONE SODIUM SUCCINATE
     Route: 065
     Dates: start: 20161106, end: 20161106
  7. MESNA EG [Suspect]
     Active Substance: MESNA
     Route: 042
     Dates: start: 20161108, end: 20161108
  8. AMIKLIN [Suspect]
     Active Substance: AMIKACIN SULFATE
     Indication: PRODUCT USED FOR UNKNOWN INDICATION
     Route: 065
     Dates: start: 20161108, end: 20161108
  9. PRAVASTATIN. [Concomitant]
     Active Substance: PRAVASTATIN
     Indication: PRODUCT USED FOR UNKNOWN INDICATION
     Route: 065
  10. ENDOXAN 1000 MG, POUDRE POUR SOLUTION INJECTABLE [Suspect]
     Active Substance: CYCLOPHOSPHAMIDE
     Indication: HIGH GRADE B-CELL LYMPHOMA BURKITT-LIKE LYMPHOMA
  11. RITUXIMAB. [Suspect]
     Active Substance: RITUXIMAB
     Indication: EVANS SYNDROME
     Route: 065
     Dates: start: 201109
  12. DOXORUBICIN [Suspect]
     Active Substance: DOXORUBICIN
     Indication: NON-HODGKIN^S LYMPHOMA METASTATIC
     Dosage: 8 COURSES R-CHOP ACCORDING TO GAINED PROTOCOL
     Route: 037
     Dates: start: 201408, end: 201412
  13. METHOTREXATE. [Suspect]
     Active Substance: METHOTREXATE
     Indication: HIGH GRADE B-CELL LYMPHOMA BURKITT-LIKE LYMPHOMA
  14. CYTARABINE KABI [Suspect]
     Active Substance: CYTARABINE
     Indication: BONE MARROW CONDITIONING REGIMEN
     Dosage: EQUIVALENT TO 386 MG EVERY 12 HOURS OR 772 MG DAILY, SOLUTION FOR INJECTION OR INFUSION, FROM DAY-6
     Route: 042
     Dates: start: 20161105, end: 20161108
  15. DEXAMETHASONE. [Suspect]
     Active Substance: DEXAMETHASONE
     Indication: NON-HODGKIN^S LYMPHOMA METASTATIC
  16. ZOPHREN [Suspect]
     Active Substance: ONDANSETRON
     Route: 065
     Dates: start: 20161107, end: 20161107
  17. SOLU-MEDROL [Suspect]
     Active Substance: METHYLPREDNISOLONE SODIUM SUCCINATE
     Indication: PRODUCT USED FOR UNKNOWN INDICATION
     Route: 065
     Dates: start: 20161105, end: 20161105
  18. EMEND [Suspect]
     Active Substance: APREPITANT
     Indication: PRODUCT USED FOR UNKNOWN INDICATION
     Route: 065
     Dates: start: 20161107, end: 20161107
  19. AXEPIM [Suspect]
     Active Substance: CEFEPIME HYDROCHLORIDE
     Indication: PRODUCT USED FOR UNKNOWN INDICATION
     Route: 065
     Dates: start: 20161108, end: 20161108
  20. AMLOR [Concomitant]
     Active Substance: AMLODIPINE BESYLATE
     Indication: PRODUCT USED FOR UNKNOWN INDICATION
     Route: 065
  21. KARDEGIC [Concomitant]
     Active Substance: ASPIRIN LYSINE
     Indication: PRODUCT USED FOR UNKNOWN INDICATION
     Route: 065
  22. ZELITREX [Concomitant]
     Active Substance: VALACYCLOVIR HYDROCHLORIDE
     Indication: PRODUCT USED FOR UNKNOWN INDICATION
     Dosage: IN MORNING AND EVENING
     Route: 065
  23. DOXORUBICIN [Suspect]
     Active Substance: DOXORUBICIN
     Indication: HIGH GRADE B-CELL LYMPHOMA BURKITT-LIKE LYMPHOMA
  24. PREDNISONE. [Suspect]
     Active Substance: PREDNISONE
     Indication: NON-HODGKIN^S LYMPHOMA METASTATIC
     Dosage: 8 COURSES R-CHOP ACCORDING TO GAINED PROTOCOL
     Route: 037
     Dates: start: 201408, end: 201412
  25. METHOTREXATE. [Suspect]
     Active Substance: METHOTREXATE
     Indication: METASTASES TO DIAPHRAGM
  26. BICNU [Suspect]
     Active Substance: CARMUSTINE
     Indication: BONE MARROW CONDITIONING REGIMEN
     Dosage: DOSAGE FORM: POWDER AND SOLVENT FOR SOLN FOR INFUSION, ONE SINGLE DOSE, EQUIVALENT TO 579 MG SINGLE
     Route: 042
     Dates: start: 20161104, end: 20161104
  27. ETOPOPHOS [Suspect]
     Active Substance: ETOPOSIDE PHOSPHATE
     Indication: BONE MARROW CONDITIONING REGIMEN
     Dosage: , EQUIVALENT TO 386 MG DAILY, ONCE EVERY 12 HOURS, EQUIVALENT TO 772 MG IN TOTAL, LYOPHILISATE FOR P
     Route: 042
     Dates: start: 20161105, end: 20161106
  28. DEXAMETHASONE. [Suspect]
     Active Substance: DEXAMETHASONE
     Indication: METASTASES TO DIAPHRAGM
  29. ARACYTINE [Suspect]
     Active Substance: CYTARABINE
     Indication: METASTASES TO DIAPHRAGM
  30. MESNA EG [Suspect]
     Active Substance: MESNA
     Route: 042
     Dates: start: 20161106, end: 20161106
  31. EMEND [Suspect]
     Active Substance: APREPITANT
     Route: 065
     Dates: start: 20161108, end: 20161108
  32. PRIMPERAN [Suspect]
     Active Substance: METOCLOPRAMIDE HYDROCHLORIDE
     Indication: PRODUCT USED FOR UNKNOWN INDICATION
     Route: 065
     Dates: start: 20161107, end: 20161107
  33. TIORFAN [Suspect]
     Active Substance: RACECADOTRIL
     Indication: PRODUCT USED FOR UNKNOWN INDICATION
     Route: 065
     Dates: start: 20161107, end: 20161107
  34. LASILIX [Suspect]
     Active Substance: FUROSEMIDE
     Indication: PRODUCT USED FOR UNKNOWN INDICATION
     Route: 065
     Dates: start: 20161107, end: 20161107
  35. ROVAMYCIN [Suspect]
     Active Substance: SPIRAMYCIN
     Indication: PRODUCT USED FOR UNKNOWN INDICATION
     Dosage: 1.5 MIU
     Route: 065
     Dates: start: 20161108, end: 20161108
  36. DOXORUBICIN [Suspect]
     Active Substance: DOXORUBICIN
     Indication: HIGH GRADE B-CELL LYMPHOMA BURKITT-LIKE LYMPHOMA RECURRENT
     Dosage: 2 COURSES R-CHOP
     Route: 065
     Dates: start: 2016, end: 2016
  37. VINCRISTINE [Suspect]
     Active Substance: VINCRISTINE
     Indication: HIGH GRADE B-CELL LYMPHOMA BURKITT-LIKE LYMPHOMA
  38. ZOPHREN [Suspect]
     Active Substance: ONDANSETRON
     Route: 065
     Dates: start: 20161108, end: 20161108
  39. MESNA EG [Suspect]
     Active Substance: MESNA
     Indication: PRODUCT USED FOR UNKNOWN INDICATION
     Route: 042
     Dates: start: 20161105, end: 20161105
  40. WELLVONE [Concomitant]
     Active Substance: ATOVAQUONE
     Indication: PRODUCT USED FOR UNKNOWN INDICATION
     Dosage: IN THE MORNING AND EVENING
     Route: 065
  41. ENDOXAN 1000 MG, POUDRE POUR SOLUTION INJECTABLE [Suspect]
     Active Substance: CYCLOPHOSPHAMIDE
     Indication: BONE MARROW CONDITIONING REGIMEN
     Dosage: 8-COURSES R-CHOP ACCORDING TO GAINED PROTOCOL
     Route: 037
     Dates: start: 201408, end: 201412
  42. ENDOXAN 1000 MG, POUDRE POUR SOLUTION INJECTABLE [Suspect]
     Active Substance: CYCLOPHOSPHAMIDE
     Indication: HIGH GRADE B-CELL LYMPHOMA BURKITT-LIKE LYMPHOMA RECURRENT
     Dosage: FROM DAY-6 TO DAY-3 BEFORE AUTOGRAFT, BEAC PROTOCOL, EQUIVALENT TO 2895 MG IN TOTAL
     Route: 042
     Dates: start: 20161105, end: 20161108
  43. RITUXIMAB. [Suspect]
     Active Substance: RITUXIMAB
     Indication: HIGH GRADE B-CELL LYMPHOMA BURKITT-LIKE LYMPHOMA RECURRENT
     Dosage: 4 INFUSIONS
     Route: 065
  44. RITUXIMAB. [Suspect]
     Active Substance: RITUXIMAB
     Indication: CYTOPENIA
     Dosage: 3 COURSES, R-DHAOX PROTOCOL
     Route: 065
  45. RITUXIMAB. [Suspect]
     Active Substance: RITUXIMAB
     Indication: HIGH GRADE B-CELL LYMPHOMA BURKITT-LIKE LYMPHOMA
  46. VINCRISTINE [Suspect]
     Active Substance: VINCRISTINE
     Indication: HIGH GRADE B-CELL LYMPHOMA BURKITT-LIKE LYMPHOMA RECURRENT
     Dosage: 2 COURSES R-CHOP
     Route: 065
     Dates: start: 2016, end: 2016
  47. PREDNISONE. [Suspect]
     Active Substance: PREDNISONE
     Indication: HIGH GRADE B-CELL LYMPHOMA BURKITT-LIKE LYMPHOMA RECURRENT
     Dosage: 2 COURSES R-CHOP
     Route: 065
     Dates: start: 2016, end: 2016
  48. PREDNISONE. [Suspect]
     Active Substance: PREDNISONE
     Indication: METASTASES TO DIAPHRAGM
  49. ARACYTINE [Suspect]
     Active Substance: CYTARABINE
     Indication: HIGH GRADE B-CELL LYMPHOMA BURKITT-LIKE LYMPHOMA
     Dosage: 3 COURSES, R-DHAOX PROTOCOL, HIGH-DOSE
     Route: 065
  50. SOLU-MEDROL [Suspect]
     Active Substance: METHYLPREDNISOLONE SODIUM SUCCINATE
     Route: 065
     Dates: start: 20161108, end: 20161108
  51. ENDOXAN 1000 MG, POUDRE POUR SOLUTION INJECTABLE [Suspect]
     Active Substance: CYCLOPHOSPHAMIDE
     Indication: METASTASES TO DIAPHRAGM
  52. RITUXIMAB. [Suspect]
     Active Substance: RITUXIMAB
     Indication: DISEASE RECURRENCE
  53. VINCRISTINE [Suspect]
     Active Substance: VINCRISTINE
     Indication: NON-HODGKIN^S LYMPHOMA METASTATIC
     Dosage: 8 COURSES R-CHOP ACCORDING TO GAINED PROTOCOL
     Route: 037
     Dates: start: 201408, end: 201412
  54. OXALIPLATIN. [Suspect]
     Active Substance: OXALIPLATIN
     Indication: HIGH GRADE B-CELL LYMPHOMA BURKITT-LIKE LYMPHOMA
     Dosage: 3 COURSES, R-DHAOX PROTOCOL
     Route: 065
  55. OXALIPLATIN. [Suspect]
     Active Substance: OXALIPLATIN
     Indication: METASTASES TO DIAPHRAGM
  56. TIORFAN [Suspect]
     Active Substance: RACECADOTRIL
     Route: 065
     Dates: start: 20161108, end: 20161108
  57. LASILIX [Suspect]
     Active Substance: FUROSEMIDE
     Route: 065
     Dates: start: 20161108, end: 20161108
  58. ENDOXAN 1000 MG, POUDRE POUR SOLUTION INJECTABLE [Suspect]
     Active Substance: CYCLOPHOSPHAMIDE
     Indication: NON-HODGKIN^S LYMPHOMA METASTATIC
     Dosage: 2 COURSES R-CHOP
     Route: 065
     Dates: start: 2016, end: 2016
  59. RITUXIMAB. [Suspect]
     Active Substance: RITUXIMAB
     Indication: NON-HODGKIN^S LYMPHOMA METASTATIC
     Dosage: 8 COURSES R-CHOP ACCORDING TO GAINED PROTOCOL
     Route: 037
     Dates: start: 201408, end: 201412
  60. RITUXIMAB. [Suspect]
     Active Substance: RITUXIMAB
     Indication: METASTASES TO DIAPHRAGM
  61. VINCRISTINE [Suspect]
     Active Substance: VINCRISTINE
     Indication: METASTASES TO DIAPHRAGM
  62. METHOTREXATE. [Suspect]
     Active Substance: METHOTREXATE
     Indication: NON-HODGKIN^S LYMPHOMA METASTATIC
     Dosage: 8 COURSES R-CHOP
     Route: 065
     Dates: start: 201408
  63. IBRUTINIB [Suspect]
     Active Substance: IBRUTINIB
     Indication: HIGH GRADE B-CELL LYMPHOMA BURKITT-LIKE LYMPHOMA RECURRENT
     Dosage: 3 COURSES
     Route: 065
     Dates: start: 2016, end: 2016
  64. OXALIPLATIN. [Suspect]
     Active Substance: OXALIPLATIN
     Indication: NON-HODGKIN^S LYMPHOMA METASTATIC
  65. ZOPHREN [Suspect]
     Active Substance: ONDANSETRON
     Indication: PRODUCT USED FOR UNKNOWN INDICATION
     Route: 065
     Dates: start: 20161104, end: 20161104
  66. SOLU-MEDROL [Suspect]
     Active Substance: METHYLPREDNISOLONE SODIUM SUCCINATE
     Route: 065
     Dates: start: 20161107, end: 20161107
  67. MESNA EG [Suspect]
     Active Substance: MESNA
     Route: 042
     Dates: start: 20161107, end: 20161107
  68. MESNA EG [Suspect]
     Active Substance: MESNA
     Route: 042
     Dates: start: 20161109, end: 20161109
  69. SMECTA [Suspect]
     Active Substance: MONTMORILLONITE
     Indication: PRODUCT USED FOR UNKNOWN INDICATION
     Route: 065
     Dates: start: 20161107, end: 20161107
  70. SMECTA [Suspect]
     Active Substance: MONTMORILLONITE
     Route: 065
     Dates: start: 20161108, end: 20161108
  71. RITUXIMAB. [Suspect]
     Active Substance: RITUXIMAB
     Indication: AUTOIMMUNE DISORDER
     Dosage: 2 COURSES R-CHOP
     Route: 065
     Dates: start: 2016, end: 2016
  72. DEXAMETHASONE. [Suspect]
     Active Substance: DEXAMETHASONE
     Indication: HIGH GRADE B-CELL LYMPHOMA BURKITT-LIKE LYMPHOMA
     Dosage: 3 COURSES, R-DHAOX PROTOCOL
     Route: 065
  73. ZOPHREN [Suspect]
     Active Substance: ONDANSETRON
     Route: 065
     Dates: start: 20161106, end: 20161106
  74. PRIMPERAN [Suspect]
     Active Substance: METOCLOPRAMIDE HYDROCHLORIDE
     Route: 065
     Dates: start: 20161108, end: 20161108
  75. LASILIX [Suspect]
     Active Substance: FUROSEMIDE
     Route: 065
     Dates: start: 20161108, end: 20161108
  76. ATENOLOL. [Concomitant]
     Active Substance: ATENOLOL
     Indication: PRODUCT USED FOR UNKNOWN INDICATION
     Route: 065

REACTIONS (13)
  - Pyrexia [Unknown]
  - Cardiotoxicity [Fatal]
  - Cardiogenic shock [Fatal]
  - Pulmonary toxicity [Fatal]
  - Diarrhoea [Unknown]
  - Cytopenia [Recovered/Resolved]
  - Disease recurrence [Recovered/Resolved]
  - Pericardial effusion [Unknown]
  - Cardio-respiratory arrest [Recovered/Resolved]
  - High grade B-cell lymphoma Burkitt-like lymphoma recurrent [Recovering/Resolving]
  - Autoimmune disorder [Recovered/Resolved]
  - Atrial fibrillation [Unknown]
  - Cardio-respiratory arrest [Recovered/Resolved]

NARRATIVE: CASE EVENT DATE: 201512
